FAERS Safety Report 4943482-9 (Version None)
Quarter: 2006Q1

REPORT INFORMATION
  Report Type: 
  Country: None (occurrence: None)
  Receive Date: 20060309
  Receipt Date: 20060226
  Transmission Date: 20060701
  Serious: Yes (Other)
  Sender: FDA-Public Use
  Company Number: 2006029856

PATIENT
  Age: 34 Year
  Sex: Female

DRUGS (1)
  1. DEPO-PROVERA [Suspect]
     Indication: CONTRACEPTION
     Dosage: 150 MG (150 MG, SIGLE INJECTION), INTRAMUSCULAR
     Route: 030
     Dates: start: 20030228, end: 20030228

REACTIONS (1)
  - INFERTILITY FEMALE [None]
